FAERS Safety Report 14211870 (Version 3)
Quarter: 2017Q4

REPORT INFORMATION
  Report Type: Spontaneous
  Country: IT (occurrence: IT)
  Receive Date: 20171122
  Receipt Date: 20171220
  Transmission Date: 20180321
  Serious: Yes (Hospitalization)
  Sender: FDA-Public Use
  Company Number: IT-TEVA-2017-IT-826311

PATIENT
  Age: 70 Year
  Sex: Male

DRUGS (7)
  1. LYRICA [Concomitant]
     Active Substance: PREGABALIN
  2. SOLDESAM [Concomitant]
     Active Substance: DEXAMETHASONE
  3. AVODART [Concomitant]
     Active Substance: DUTASTERIDE
  4. DIURESIX [Concomitant]
     Active Substance: TORSEMIDE
  5. LANSOPRAZOLE. [Concomitant]
     Active Substance: LANSOPRAZOLE
  6. CARBOPLATIN. [Suspect]
     Active Substance: CARBOPLATIN
     Indication: MYELODYSPLASTIC SYNDROME
     Route: 042
     Dates: start: 20170131, end: 20170131
  7. TARGIN [Concomitant]
     Active Substance: NALOXONE HYDROCHLORIDE\OXYCODONE HYDROCHLORIDE

REACTIONS (2)
  - Thrombocytopenia [Recovering/Resolving]
  - Petechiae [Recovering/Resolving]

NARRATIVE: CASE EVENT DATE: 20170216
